FAERS Safety Report 8193607-X (Version None)
Quarter: 2012Q1

REPORT INFORMATION
  Report Type: 
  Country: None (occurrence: None)
  Receive Date: 20120308
  Receipt Date: 20120305
  Transmission Date: 20120608
  Serious: Yes (Other)
  Sender: FDA-Public Use
  Company Number: CN-PFIZER INC-2012058984

PATIENT
  Sex: Male

DRUGS (1)
  1. VIAGRA [Suspect]
     Dosage: UNK
     Route: 048
     Dates: start: 20120228

REACTIONS (5)
  - ERYTHEMA [None]
  - EYE SWELLING [None]
  - DRUG INEFFECTIVE [None]
  - PALPITATIONS [None]
  - BACK PAIN [None]
